FAERS Safety Report 4515177-7 (Version None)
Quarter: 2004Q4

REPORT INFORMATION
  Report Type: 
  Country: None (occurrence: None)
  Receive Date: 20041201
  Receipt Date: 20040922
  Transmission Date: 20050328
  Serious: Yes (Death, Life-Threatening, Hospitalization)
  Sender: FDA-Public Use
  Company Number: JPKYO-S-20040033

PATIENT
  Age: 64 Year
  Sex: Male

DRUGS (10)
  1. NAVELBINE [Suspect]
     Route: 042
     Dates: start: 20040618, end: 20040625
  2. BAYCARON [Concomitant]
  3. AMLODIN [Concomitant]
  4. TENORMIN [Concomitant]
  5. BLOPRESS [Concomitant]
  6. TRYPTANOL [Concomitant]
  7. LANOXIN [Concomitant]
  8. ZANTAC [Concomitant]
  9. MEFRUSIDE [Concomitant]
     Indication: ILL-DEFINED DISORDER
     Dates: start: 19730101
  10. MAGNESIUM OXIDE [Concomitant]
     Indication: ILL-DEFINED DISORDER
     Dates: start: 20040705

REACTIONS (6)
  - COMPUTERISED TOMOGRAM [None]
  - DYSPNOEA [None]
  - INTERSTITIAL LUNG DISEASE [None]
  - PAIN [None]
  - PNEUMONIA [None]
  - PYREXIA [None]
